FAERS Safety Report 5079503-5 (Version None)
Quarter: 2006Q3

REPORT INFORMATION
  Report Type: 
  Country: None (occurrence: None)
  Receive Date: 20060814
  Receipt Date: 20050926
  Transmission Date: 20061208
  Serious: No
  Sender: FDA-Public Use
  Company Number: US-BRISTOL-MYERS SQUIBB COMPANY-13121710

PATIENT
  Age: 47 Year
  Sex: Male
  Weight: 84 kg

DRUGS (3)
  1. GLUCOVANCE [Suspect]
     Indication: DIABETES MELLITUS
     Dosage: DOSAGE FORM = 1 TABLET, 2.5MG/500MG
  2. GLYBURIDE [Suspect]
     Indication: DIABETES MELLITUS
  3. VITAMIN [Concomitant]

REACTIONS (1)
  - VISION BLURRED [None]
